FAERS Safety Report 21758586 (Version 2)
Quarter: 2025Q1

REPORT INFORMATION
  Report Type: Spontaneous
  Country: US (occurrence: US)
  Receive Date: 20221221
  Receipt Date: 20250113
  Transmission Date: 20250409
  Serious: No
  Sender: SANOFI AVENTIS
  Company Number: US-SA-SAC20221216000566

PATIENT
  Sex: Male
  Weight: 65.77 kg

DRUGS (11)
  1. DUPIXENT [Suspect]
     Active Substance: DUPILUMAB
     Indication: Illness
     Dosage: 300 MG, QOW
     Route: 058
  2. DUPIXENT [Suspect]
     Active Substance: DUPILUMAB
     Dosage: 300 MG QOW
     Route: 058
  3. GEMFIBROZIL [Concomitant]
     Active Substance: GEMFIBROZIL
  4. ASPIRIN [Concomitant]
     Active Substance: ASPIRIN
  5. ROSUVASTATIN CALCIUM [Concomitant]
     Active Substance: ROSUVASTATIN CALCIUM
  6. POTASSIUM CHLORIDE [Concomitant]
     Active Substance: POTASSIUM CHLORIDE
  7. ACETAMINOPHEN [Concomitant]
     Active Substance: ACETAMINOPHEN
  8. HYDROCHLOROTHIAZIDE [Concomitant]
     Active Substance: HYDROCHLOROTHIAZIDE
  9. OMEPRAZOLE [Concomitant]
     Active Substance: OMEPRAZOLE
  10. SPIRIVA RESPIMAT [Concomitant]
     Active Substance: TIOTROPIUM BROMIDE
  11. ATENOLOL [Concomitant]
     Active Substance: ATENOLOL

REACTIONS (2)
  - Illness [Unknown]
  - Cough [Unknown]
